FAERS Safety Report 20848667 (Version 1)
Quarter: 2022Q2

REPORT INFORMATION
  Report Type: Spontaneous
  Country: TW (occurrence: TW)
  Receive Date: 20220519
  Receipt Date: 20220519
  Transmission Date: 20220721
  Serious: Yes (Death, Life-Threatening, Hospitalization, Other)
  Sender: FDA-Public Use
  Company Number: TW-PFIZER INC-202200697082

PATIENT
  Age: 27 Year
  Sex: Female

DRUGS (2)
  1. CYTARABINE [Suspect]
     Active Substance: CYTARABINE
     Indication: Acute myeloid leukaemia
     Dosage: 150 MG/M2, CYCLIC, ON DAY  1 AND 7
  2. DAUNORUBICIN HYDROCHLORIDE [Suspect]
     Active Substance: DAUNORUBICIN HYDROCHLORIDE
     Indication: Acute myeloid leukaemia
     Dosage: 60 MG/M2, CYCLIC, ON DAY 1 TO 3

REACTIONS (2)
  - Neutropenic colitis [Fatal]
  - Necrotising colitis [Fatal]
